FAERS Safety Report 11742262 (Version 5)
Quarter: 2017Q3

REPORT INFORMATION
  Report Type: Spontaneous
  Country: US (occurrence: US)
  Receive Date: 20151116
  Receipt Date: 20170811
  Transmission Date: 20171127
  Serious: No
  Sender: FDA-Public Use
  Company Number: US-ACTELION PHARMACEUTICALS US, INC.-A-NJ2015-112787

PATIENT
  Age: 68 Year
  Sex: Female
  Weight: 49.43 kg

DRUGS (4)
  1. ADCIRCA [Concomitant]
     Active Substance: TADALAFIL
  2. REMODULIN [Concomitant]
     Active Substance: TREPROSTINIL
  3. TRACLEER [Suspect]
     Active Substance: BOSENTAN
     Indication: PULMONARY ARTERIAL HYPERTENSION
     Dosage: 125 MG, BID
     Route: 048
  4. COUMADIN [Concomitant]
     Active Substance: WARFARIN SODIUM

REACTIONS (13)
  - Diarrhoea [Unknown]
  - Middle ear effusion [Unknown]
  - Fungal infection [Unknown]
  - Herpes zoster [Unknown]
  - Rash papular [Unknown]
  - Liver function test increased [Unknown]
  - Multiple allergies [Unknown]
  - Eczema [Unknown]
  - Cystitis [Unknown]
  - Nasal septum deviation [Unknown]
  - Hypotension [Unknown]
  - Rash pruritic [Unknown]
  - Seasonal allergy [Unknown]
